FAERS Safety Report 7037864 (Version 2)
Quarter: 2012Q4

REPORT INFORMATION
  Report Type: 
  Country: DE (occurrence: DE)
  Receive Date: 20090630
  Receipt Date: 20121213
  Transmission Date: 20130627
  Serious: Yes (Hospitalization)
  Sender: FDA-Public Use
  Company Number: PHHO2009DE08022

PATIENT
  Sex: Female

DRUGS (48)
  1. CYCLOSPORINE [Suspect]
     Indication: RENAL TRANSPLANT
     Dosage: 180 mg, BID
     Route: 048
     Dates: start: 20040610
  2. CYCLOSPORINE [Suspect]
     Dosage: 85 mg, BID
     Route: 048
     Dates: start: 20060610
  3. CYCLOSPORINE [Suspect]
     Dosage: 200 mg, BID
     Route: 048
     Dates: start: 20040611
  4. CYCLOSPORINE [Suspect]
     Dosage: 287.5 mg, 2 total
     Route: 048
     Dates: start: 20040618
  5. CYCLOSPORINE [Suspect]
     Dosage: 275 mg, BID
     Route: 048
     Dates: start: 20040619, end: 20040620
  6. CYCLOSPORINE [Suspect]
     Dosage: 287.5, 2 total
     Route: 048
     Dates: start: 20040621
  7. CYCLOSPORINE [Suspect]
     Dosage: 300 mg, BID
     Route: 048
     Dates: start: 20040622, end: 20040623
  8. CYCLOSPORINE [Suspect]
     Dosage: 275  mg, 1 total
     Route: 048
     Dates: start: 20040624
  9. CYCLOSPORINE [Suspect]
     Dosage: 130 mg, BID
     Route: 048
     Dates: start: 20040625
  10. CYCLOSPORINE [Suspect]
     Dosage: 110 mg, BID
     Route: 048
     Dates: start: 20041208
  11. CYCLOSPORINE [Suspect]
     Dosage: 100 mg, BID
     Route: 048
     Dates: start: 20050614
  12. CYCLOSPORINE [Suspect]
     Dosage: 90 mg, BID
     Route: 048
     Dates: start: 20061209
  13. CYCLOSPORINE [Suspect]
     Dosage: 95 mg, BID
     Route: 048
     Dates: start: 20060517
  14. CYCLOSPORINE [Suspect]
     Dosage: 80 mg, BID
     Route: 048
     Dates: start: 20061211
  15. MYCOPHENOLATE MOFETIL [Suspect]
     Indication: RENAL TRANSPLANT
     Dosage: 1 g, BID
     Route: 048
     Dates: start: 20040610
  16. PREDNISOLONE [Suspect]
     Indication: RENAL TRANSPLANT
     Dosage: 100 mg, QD
     Route: 048
     Dates: start: 20040610, end: 20040611
  17. PREDNISOLONE [Suspect]
     Dosage: 250 mg, 1 total
     Route: 042
     Dates: start: 20040611, end: 20040612
  18. PREDNISOLONE [Suspect]
     Dosage: 35 mg, QD
     Dates: start: 20040612, end: 20040618
  19. PREDNISOLONE [Suspect]
     Dosage: 250 mg, ONCE/SINGLE
     Dates: start: 20040610, end: 20040619
  20. PREDNISOLONE [Suspect]
     Dosage: 7.5 mg, QD
     Dates: start: 20040621, end: 20041013
  21. PREDNISOLONE [Suspect]
     Dosage: 2.5 mg, QD
     Dates: start: 20041014
  22. PREDNISOLONE [Suspect]
     Dosage: 3.75 mg, QD
     Dates: start: 20050614
  23. PREDNISOLONE [Suspect]
     Dosage: 2.5 mg, QD
     Dates: start: 20051209
  24. PREDNISOLONE [Suspect]
     Dosage: 1.25  mg, QD
     Dates: start: 20061211, end: 200702
  25. ACTONEL [Concomitant]
     Route: 048
  26. AMPHOTERICIN B [Concomitant]
     Route: 061
  27. ARANESP [Concomitant]
     Dosage: 30 ug, QW
     Route: 058
     Dates: start: 20040626, end: 20040810
  28. ARTERENOL [Concomitant]
     Dosage: 1 PRN
     Route: 042
     Dates: start: 20040610, end: 20040611
  29. CALCIUM ACETATE [Concomitant]
     Dosage: 1 DF, TID
     Route: 048
     Dates: start: 20040614, end: 20040701
  30. CIPROFLOXACIN [Concomitant]
     Dosage: 250 mg, BID
     Route: 048
     Dates: start: 20040605, end: 20040608
  31. CIPROFLOXACIN [Concomitant]
     Dosage: 250 mg, BID
     Route: 048
     Dates: start: 20040726, end: 20040801
  32. DOBUTAMINE [Concomitant]
     Dosage: 20 mg, 1 HR
     Route: 042
     Dates: start: 20040610, end: 20040612
  33. DREISAVIT [Concomitant]
     Dosage: 1 DF, QD
     Route: 048
  34. DREISAVIT [Concomitant]
     Dosage: UNK
     Route: 048
     Dates: end: 20040630
  35. FLUVASTATIN [Concomitant]
     Dosage: 80 mg, QD
     Route: 048
     Dates: start: 20040611
  36. FUROSEMIDE [Concomitant]
     Dosage: 20 mg, BID
     Route: 048
     Dates: start: 20040629, end: 20050613
  37. HYDROCHLOROTHIAZIDE [Concomitant]
     Dosage: 12.5 mg, QD
     Route: 048
     Dates: start: 20040705, end: 20041115
  38. KEPINOL [Concomitant]
     Dosage: 480 mg, QD
     Route: 048
     Dates: start: 20040614, end: 20050530
  39. LACTULOSE [Concomitant]
     Dosage: 10 g, TID
     Route: 048
     Dates: start: 20040615, end: 20040620
  40. LORAZEPAM [Concomitant]
     Dosage: 1 mg, QD
     Route: 048
     Dates: start: 20040615, end: 20040619
  41. MOVICOL [Concomitant]
     Dosage: 1 DF, total
     Route: 048
     Dates: start: 20040815
  42. NEORECORMON [Concomitant]
     Dosage: 1000 IU, QW3
     Route: 042
     Dates: end: 20040625
  43. NEORECORMON [Concomitant]
     Dosage: 1000 IU, QW3
     Route: 042
  44. REDUCTO [Concomitant]
     Dosage: 2 DF, TID
     Route: 048
     Dates: start: 20040629, end: 20041208
  45. TROMCARDIN [Concomitant]
     Dosage: 2 DF, TID
     Route: 048
     Dates: start: 20040623, end: 20040629
  46. UNACID [Concomitant]
     Dosage: 1.5 g, BID
     Route: 042
     Dates: start: 20040610, end: 20040614
  47. UNACID PD ORAL [Concomitant]
     Dosage: 2 DF, BID
     Dates: start: 20040614, end: 20040630
  48. K-DUR [Concomitant]
     Dosage: 2 DF, TID
     Route: 048
     Dates: start: 20040627

REACTIONS (1)
  - Cholecystitis [Recovered/Resolved]
